FAERS Safety Report 9552104 (Version 1)
Quarter: 2013Q3

REPORT INFORMATION
  Report Type: Spontaneous
  Country: US (occurrence: None)
  Receive Date: 20130923
  Receipt Date: 20130923
  Transmission Date: 20140515
  Serious: Yes (Hospitalization)
  Sender: FDA-Public Use
  Company Number: None

PATIENT
  Age: 67 Year
  Sex: Female
  Weight: 55.75 kg

DRUGS (1)
  1. ALFA 2 INTERFERON 2B (INTRON-A) [Suspect]

REACTIONS (9)
  - Hypophagia [None]
  - Fatigue [None]
  - Epigastric discomfort [None]
  - Headache [None]
  - Nausea [None]
  - Aspartate aminotransferase increased [None]
  - Performance status decreased [None]
  - Abdominal pain upper [None]
  - Alanine aminotransferase increased [None]
